FAERS Safety Report 16314691 (Version 2)
Quarter: 2019Q2

REPORT INFORMATION
  Report Type: Spontaneous
  Country: CN (occurrence: CN)
  Receive Date: 20190515
  Receipt Date: 20190522
  Transmission Date: 20190711
  Serious: Yes (Other)
  Sender: FDA-Public Use
  Company Number: CN-BAYER-2019-091585

PATIENT
  Age: 30 Year
  Sex: Female
  Weight: 71 kg

DRUGS (2)
  1. AVELOX [Suspect]
     Active Substance: MOXIFLOXACIN HYDROCHLORIDE
     Indication: DRUG THERAPY
     Dosage: 400 MG, QD
     Route: 041
     Dates: start: 20190412, end: 20190412
  2. AVELOX [Suspect]
     Active Substance: MOXIFLOXACIN HYDROCHLORIDE
     Indication: DRUG THERAPY
     Dosage: 400 MG, QD
     Route: 041
     Dates: start: 20190414, end: 20190414

REACTIONS (6)
  - Vascular pain [Recovering/Resolving]
  - Headache [Recovering/Resolving]
  - Pyrexia [Recovering/Resolving]
  - Pyrexia [Recovering/Resolving]
  - Vascular pain [Recovering/Resolving]
  - Headache [Recovering/Resolving]

NARRATIVE: CASE EVENT DATE: 20190412
